FAERS Safety Report 9207863 (Version 2)
Quarter: 2013Q2

REPORT INFORMATION
  Report Type: Spontaneous
  Country: JP (occurrence: JP)
  Receive Date: 20130403
  Receipt Date: 20130419
  Transmission Date: 20140414
  Serious: Yes (Hospitalization)
  Sender: FDA-Public Use
  Company Number: JP-ABBOTT-13X-087-1071201-00

PATIENT
  Sex: Female

DRUGS (8)
  1. KLARICID [Suspect]
     Indication: PHARYNGITIS
     Route: 048
     Dates: start: 20120126, end: 20120130
  2. KLARICID [Suspect]
     Indication: ACUTE SINUSITIS
  3. OZEX [Suspect]
     Indication: PHARYNGITIS
     Route: 048
     Dates: start: 20120131
  4. OZEX [Suspect]
     Indication: ACUTE SINUSITIS
  5. OTHER UNKNOWN MEDICATIONS [Suspect]
     Indication: PRODUCT USED FOR UNKNOWN INDICATION
  6. CARBOCISTEINE [Concomitant]
     Indication: PRODUCT USED FOR UNKNOWN INDICATION
     Route: 048
     Dates: start: 20120126, end: 20120130
  7. BEPOTASTINE BESILATE [Concomitant]
     Indication: PRODUCT USED FOR UNKNOWN INDICATION
     Route: 048
     Dates: start: 20120126, end: 20120130
  8. BEPOTASTINE BESILATE [Concomitant]
     Indication: PRODUCT USED FOR UNKNOWN INDICATION
     Route: 048
     Dates: start: 20120126, end: 20120130

REACTIONS (1)
  - Interstitial lung disease [Recovering/Resolving]
